FAERS Safety Report 6219937-6 (Version None)
Quarter: 2009Q2

REPORT INFORMATION
  Report Type: 
  Country: None (occurrence: None)
  Receive Date: 20090609
  Receipt Date: 20090116
  Transmission Date: 20091009
  Serious: No
  Sender: FDA-Public Use
  Company Number: US-BAYER-200911472NA

PATIENT
  Age: 48 Year
  Sex: Male
  Weight: 136 kg

DRUGS (9)
  1. ULTRAVIST 370 [Suspect]
     Indication: COMPUTERISED TOMOGRAM ABDOMEN
     Dosage: TOTAL DAILY DOSE: 150 ML  UNIT DOSE: 100 ML
     Route: 042
     Dates: start: 20090116, end: 20090116
  2. ADVAIR HFA [Concomitant]
  3. ALBUTEROL [Concomitant]
  4. ASTELIN [Concomitant]
  5. NASONEX [Concomitant]
  6. LIPITOR [Concomitant]
  7. NEXIUM [Concomitant]
  8. SINGULAIR [Concomitant]
  9. HYDROCHLOROTHIAZIDE [Concomitant]

REACTIONS (3)
  - PARAESTHESIA ORAL [None]
  - PRURITUS [None]
  - VOMITING PROJECTILE [None]
